FAERS Safety Report 19495081 (Version 3)
Quarter: 2021Q3

REPORT INFORMATION
  Report Type: Spontaneous
  Country: US (occurrence: US)
  Receive Date: 20210706
  Receipt Date: 20210901
  Transmission Date: 20211014
  Serious: No
  Sender: FDA-Public Use
  Company Number: US-ASTRAZENECA-2021A548260

PATIENT
  Age: 702 Month
  Sex: Female
  Weight: 88.9 kg

DRUGS (2)
  1. BYDUREON [Suspect]
     Active Substance: EXENATIDE
     Indication: TYPE 2 DIABETES MELLITUS
     Route: 065
  2. BYDUREON BCISE [Suspect]
     Active Substance: EXENATIDE
     Indication: TYPE 2 DIABETES MELLITUS
     Route: 065

REACTIONS (8)
  - Vein rupture [Recovered/Resolved]
  - Incorrect dose administered by device [Unknown]
  - Injection site pain [Recovered/Resolved]
  - Device use issue [Unknown]
  - Injection site scar [Not Recovered/Not Resolved]
  - Spider vein [Recovered/Resolved]
  - Device leakage [Unknown]
  - Injection site nodule [Recovered/Resolved]

NARRATIVE: CASE EVENT DATE: 202106
